FAERS Safety Report 15226438 (Version 1)
Quarter: 2018Q3

REPORT INFORMATION
  Report Type: Spontaneous
  Country: US (occurrence: US)
  Receive Date: 20180801
  Receipt Date: 20180801
  Transmission Date: 20181010
  Serious: No
  Sender: FDA-Public Use
  Company Number: US-009507513-1807USA012735

PATIENT
  Age: 34 Year
  Sex: Female

DRUGS (5)
  1. MENOPUR [Concomitant]
     Active Substance: FOLLITROPIN\LUTEINIZING HORMONE
  2. LEUPROLIDE [Concomitant]
     Active Substance: LEUPROLIDE
  3. FOLLISTIM [Suspect]
     Active Substance: FOLLITROPIN
     Indication: INFERTILITY FEMALE
     Dosage: 225 DF, QD
     Route: 058
     Dates: start: 20180711
  4. AZITHROMYCIN ANHYDROUS. [Concomitant]
     Active Substance: AZITHROMYCIN ANHYDROUS
  5. CETROTIDE [Concomitant]
     Active Substance: CETRORELIX ACETATE

REACTIONS (2)
  - Product quality issue [Unknown]
  - Poor quality device used [Unknown]

NARRATIVE: CASE EVENT DATE: 201807
